FAERS Safety Report 26144486 (Version 1)
Quarter: 2025Q4

REPORT INFORMATION
  Report Type: Spontaneous
  Country: US (occurrence: None)
  Receive Date: 20251210
  Receipt Date: 20251210
  Transmission Date: 20260117
  Serious: No
  Sender: FDA-CTU
  Company Number: None

PATIENT
  Sex: Male

DRUGS (3)
  1. ADVATE [Suspect]
     Active Substance: ANTIHEMOPHILIC FACTOR, HUMAN RECOMBINANT
     Indication: Factor VIII deficiency
     Dosage: OTHER STRENGTH : 3000;?FREQUENCY : AS NEEDED;
     Route: 040
     Dates: start: 20230315
  2. HEMLIBRA [Suspect]
     Active Substance: EMICIZUMAB-KXWH
  3. DEVICE [Concomitant]
     Active Substance: DEVICE

REACTIONS (1)
  - Haemorrhage [None]
